FAERS Safety Report 15600186 (Version 2)
Quarter: 2018Q4

REPORT INFORMATION
  Report Type: Report from Study
  Country: AU (occurrence: AU)
  Receive Date: 20181109
  Receipt Date: 20181122
  Transmission Date: 20190205
  Serious: Yes (Other)
  Sender: FDA-Public Use
  Company Number: AU-REGENERON PHARMACEUTICALS, INC.-2018-43681

PATIENT

DRUGS (2)
  1. EYLEA [Suspect]
     Active Substance: AFLIBERCEPT
     Dosage: INTRAVITREAL INJECTION TO RIGHT EYE ONLY
     Route: 031
  2. EYLEA [Suspect]
     Active Substance: AFLIBERCEPT
     Indication: DIABETIC RETINAL OEDEMA
     Dosage: INTRAVITREAL INJECTION TO BOTH EYE
     Route: 031
     Dates: start: 20180103

REACTIONS (2)
  - Ocular discomfort [Not Recovered/Not Resolved]
  - Glaucoma surgery [Not Recovered/Not Resolved]

NARRATIVE: CASE EVENT DATE: 201805
